FAERS Safety Report 21162626 (Version 1)
Quarter: 2022Q3

REPORT INFORMATION
  Report Type: Report from Study
  Country: EG (occurrence: EG)
  Receive Date: 20220802
  Receipt Date: 20220802
  Transmission Date: 20221026
  Serious: Yes (Other)
  Sender: FDA-Public Use
  Company Number: EG-NOVARTISPH-NVSC2022EG172701

PATIENT
  Age: 50 Year
  Sex: Female

DRUGS (11)
  1. FEMARA [Suspect]
     Active Substance: LETROZOLE
     Indication: Breast cancer metastatic
     Dosage: UNK
     Route: 048
     Dates: start: 201901, end: 202203
  2. FEMARA [Suspect]
     Active Substance: LETROZOLE
     Indication: Metastases to bone marrow
  3. AFINITOR [Suspect]
     Active Substance: EVEROLIMUS
     Indication: Breast cancer metastatic
     Dosage: 1 DOSAGE FORM, QD
     Route: 048
     Dates: start: 202204
  4. AFINITOR [Suspect]
     Active Substance: EVEROLIMUS
     Indication: Metastases to bone marrow
  5. DIMETHICONE\MEBEVERINE [Concomitant]
     Active Substance: DIMETHICONE\MEBEVERINE
     Indication: Gastritis
     Dosage: 1 DOSAGE FORM, QD (ONE TABLET PER DAY)
     Route: 065
     Dates: start: 2012
  6. BISOPROLOL FUMARATE [Concomitant]
     Active Substance: BISOPROLOL FUMARATE
     Indication: Hypertension
     Dosage: 1 DOSAGE FORM, QD (ONE TABLET PER DAY)
     Route: 065
     Dates: start: 2012
  7. AVIVAVASC [Concomitant]
     Indication: Hypertension
     Dosage: UNK, BID
     Route: 065
     Dates: start: 202201
  8. AROMASIN [Concomitant]
     Active Substance: EXEMESTANE
     Indication: Breast cancer metastatic
     Dosage: 1 DOSAGE FORM, QD
     Route: 065
     Dates: start: 202204
  9. AROMASIN [Concomitant]
     Active Substance: EXEMESTANE
     Indication: Metastases to bone marrow
  10. OSTEOCARE [Concomitant]
     Active Substance: CALCIUM\CHOLECALCIFEROL\MAGNESIUM\ZINC
     Indication: Mineral supplementation
     Dosage: 1 DOSAGE FORM, QD
     Route: 065
     Dates: start: 201904
  11. ZOMETA [Concomitant]
     Active Substance: ZOLEDRONIC ACID
     Indication: Mineral supplementation
     Dosage: UNK, 28D (INJECTION EVERY 28 DAYS)
     Route: 065
     Dates: start: 20220328

REACTIONS (7)
  - Metastases to spine [Not Recovered/Not Resolved]
  - Hypoacusis [Not Recovered/Not Resolved]
  - Eye disorder [Not Recovered/Not Resolved]
  - Hypoaesthesia [Not Recovered/Not Resolved]
  - Blood glucose increased [Not Recovered/Not Resolved]
  - Abdominal pain upper [Unknown]
  - Vomiting [Unknown]

NARRATIVE: CASE EVENT DATE: 20220301
